FAERS Safety Report 4856507-6 (Version None)
Quarter: 2005Q4

REPORT INFORMATION
  Report Type: 
  Country: None (occurrence: None)
  Receive Date: 20051219
  Receipt Date: 20050223
  Transmission Date: 20060501
  Serious: No
  Sender: FDA-Public Use
  Company Number: US-GLAXOSMITHKLINE-A0546893A

PATIENT

DRUGS (1)
  1. EQUATE NTS 21MG [Suspect]

REACTIONS (1)
  - DRUG INEFFECTIVE [None]
